FAERS Safety Report 18134825 (Version 1)
Quarter: 2020Q3

REPORT INFORMATION
  Report Type: Spontaneous
  Country: US (occurrence: US)
  Receive Date: 20200811
  Receipt Date: 20200811
  Transmission Date: 20201103
  Serious: Yes (Other)
  Sender: FDA-Public Use
  Company Number: None

PATIENT
  Age: 18 Year
  Sex: Female
  Weight: 67.5 kg

DRUGS (3)
  1. MAGNESIUM [Concomitant]
     Active Substance: MAGNESIUM
  2. VENLAFAXINE HCL [Suspect]
     Active Substance: VENLAFAXINE HYDROCHLORIDE
     Indication: ANXIETY
     Dosage: ?          QUANTITY:1 CAPSULE(S);?
     Route: 048
     Dates: start: 20200805, end: 20200806
  3. MULTIVITAMIN WOMEN^S SMARTY PANTS [Concomitant]

REACTIONS (7)
  - Panic attack [None]
  - Loss of personal independence in daily activities [None]
  - Feeding disorder [None]
  - Mental disorder [None]
  - Depersonalisation/derealisation disorder [None]
  - Thinking abnormal [None]
  - Self-injurious ideation [None]

NARRATIVE: CASE EVENT DATE: 20200806
